FAERS Safety Report 8756349 (Version 1)
Quarter: 2012Q4

REPORT INFORMATION
  Report Type: 
  Country: US (occurrence: US)
  Receive Date: 20120828
  Receipt Date: 20120828
  Transmission Date: 20130627
  Serious: No
  Sender: FDA-Public Use
  Company Number: US-009507513-1207USA009042

PATIENT

DRUGS (1)
  1. NEXPLANON [Suspect]
     Indication: CONTRACEPTION
     Dosage: 68 mg 3 year implant
     Route: 059
     Dates: end: 201206

REACTIONS (1)
  - Rash generalised [Unknown]
